FAERS Safety Report 9397201 (Version 3)
Quarter: 2014Q1

REPORT INFORMATION
  Report Type: Spontaneous
  Country: US (occurrence: US)
  Receive Date: 20130712
  Receipt Date: 20140226
  Transmission Date: 20141002
  Serious: Yes (Hospitalization, Other)
  Sender: FDA-Public Use
  Company Number: US-JNJFOC-20130701718

PATIENT
  Age: 60 Year
  Sex: Male
  Weight: 97.7 kg

DRUGS (4)
  1. XARELTO [Suspect]
     Indication: CEREBROVASCULAR ACCIDENT PROPHYLAXIS
     Dosage: LAST DOSE WAS GIVEN AT 9 AM
     Route: 048
     Dates: start: 20121222, end: 20130107
  2. XARELTO [Suspect]
     Indication: ATRIAL FIBRILLATION
     Dosage: LAST DOSE WAS GIVEN AT 9 AM
     Route: 048
     Dates: start: 20121222, end: 20130107
  3. NEBIVOLOL [Concomitant]
     Route: 048
     Dates: end: 20121222
  4. DRONEDARONE [Concomitant]
     Route: 048
     Dates: start: 20121212, end: 20121222

REACTIONS (2)
  - Haemorrhagic transformation stroke [Recovering/Resolving]
  - Ischaemic cerebral infarction [Unknown]
